FAERS Safety Report 9349895 (Version 1)
Quarter: 2013Q2

REPORT INFORMATION
  Report Type: Spontaneous
  Country: BE (occurrence: BE)
  Receive Date: 20130614
  Receipt Date: 20130614
  Transmission Date: 20140414
  Serious: Yes (Hospitalization, Other)
  Sender: FDA-Public Use
  Company Number: PHHY2013BE059606

PATIENT
  Age: 58 Year
  Sex: Male

DRUGS (1)
  1. PARACETAMOL [Suspect]
     Dosage: 8 G, OVER 6 HOURS

REACTIONS (2)
  - Acute hepatic failure [Unknown]
  - Toxicity to various agents [Unknown]
